FAERS Safety Report 21903633 (Version 1)
Quarter: 2023Q1

REPORT INFORMATION
  Report Type: Spontaneous
  Country: US (occurrence: None)
  Receive Date: 20230123
  Receipt Date: 20230123
  Transmission Date: 20230418
  Serious: No
  Sender: FDA-Public Use
  Company Number: None

PATIENT
  Age: 63 Year
  Sex: Male
  Weight: 97.7 kg

DRUGS (1)
  1. BRILINTA [Suspect]
     Active Substance: TICAGRELOR
     Indication: Acute myocardial infarction
     Dosage: FREQUENCY : TWICE A DAY;?
     Route: 048
     Dates: start: 20230119

REACTIONS (2)
  - Dyspnoea [None]
  - Sleep apnoea syndrome [None]

NARRATIVE: CASE EVENT DATE: 20230120
